FAERS Safety Report 25387224 (Version 2)
Quarter: 2025Q4

REPORT INFORMATION
  Report Type: Report from Study
  Country: EU (occurrence: EU)
  Receive Date: 20250602
  Receipt Date: 20251012
  Transmission Date: 20260117
  Serious: Yes (Hospitalization, Other)
  Sender: ABBVIE
  Company Number: EU-ABBVIE-6306508

PATIENT
  Age: 75 Year
  Sex: Female

DRUGS (1)
  1. RINVOQ [Suspect]
     Active Substance: UPADACITINIB
     Indication: Product used for unknown indication
     Route: 048
     Dates: start: 202204

REACTIONS (3)
  - Hip arthroplasty [Recovered/Resolved]
  - Dizziness [Unknown]
  - Hypertensive crisis [Unknown]

NARRATIVE: CASE EVENT DATE: 20250221
